FAERS Safety Report 5562349-9 (Version None)
Quarter: 2007Q4

REPORT INFORMATION
  Report Type: 
  Country: None (occurrence: None)
  Receive Date: 20071215
  Receipt Date: 20070802
  Transmission Date: 20080405
  Serious: No
  Sender: FDA-Public Use
  Company Number: US-AMGEN-US237349

PATIENT
  Sex: Female
  Weight: 87.2 kg

DRUGS (2)
  1. ENBREL [Suspect]
     Indication: RHEUMATOID ARTHRITIS
     Route: 058
     Dates: start: 20061212
  2. METHOTREXATE [Concomitant]
     Route: 065

REACTIONS (5)
  - CONTUSION [None]
  - INJECTION SITE BRUISING [None]
  - INJECTION SITE PAIN [None]
  - INJURY [None]
  - MUSCLE STRAIN [None]
